FAERS Safety Report 10889721 (Version 1)
Quarter: 2015Q1

REPORT INFORMATION
  Report Type: Spontaneous
  Country: SE (occurrence: SE)
  Receive Date: 20150306
  Receipt Date: 20150306
  Transmission Date: 20150721
  Serious: Yes (Disabling)
  Sender: FDA-Public Use
  Company Number: SE-009507513-1502SWE009897

PATIENT
  Age: 28 Year
  Sex: Female

DRUGS (2)
  1. NEXPLANON [Suspect]
     Active Substance: ETONOGESTREL
     Indication: CONTRACEPTION
     Dosage: UNK
     Route: 058
     Dates: end: 20130429
  2. NEXPLANON [Suspect]
     Active Substance: ETONOGESTREL
     Dosage: UNK
     Route: 058
     Dates: start: 20130429, end: 20131017

REACTIONS (6)
  - Ulnar nerve injury [Not Recovered/Not Resolved]
  - Muscular weakness [Not Recovered/Not Resolved]
  - Mood altered [Unknown]
  - Medical device complication [Recovered/Resolved]
  - Device deployment issue [Recovered/Resolved]
  - Hypoaesthesia [Not Recovered/Not Resolved]

NARRATIVE: CASE EVENT DATE: 2013
